FAERS Safety Report 4471019-X (Version None)
Quarter: 2004Q4

REPORT INFORMATION
  Report Type: 
  Country: None (occurrence: None)
  Receive Date: 20041011
  Receipt Date: 20040824
  Transmission Date: 20050328
  Serious: Yes (Death)
  Sender: FDA-Public Use
  Company Number: US-GLAXOSMITHKLINE-A0523499A

PATIENT
  Age: 55 Year
  Sex: Male

DRUGS (6)
  1. PAXIL [Suspect]
     Dosage: 10MG PER DAY
     Route: 048
     Dates: start: 20020828, end: 20020918
  2. TOPROL-XL [Concomitant]
  3. AMARYL [Concomitant]
  4. LOTENSIN [Concomitant]
  5. ASPIRIN [Concomitant]
  6. CENTRUM [Concomitant]

REACTIONS (15)
  - AGITATION [None]
  - AKATHISIA [None]
  - ANOREXIA [None]
  - ANXIETY [None]
  - COMPLETED SUICIDE [None]
  - CONFUSIONAL STATE [None]
  - CRYING [None]
  - DISABILITY [None]
  - DISTURBANCE IN ATTENTION [None]
  - FEAR [None]
  - HYPERHIDROSIS [None]
  - PARANOIA [None]
  - SOCIAL AVOIDANT BEHAVIOUR [None]
  - SUICIDAL IDEATION [None]
  - TEARFULNESS [None]
